FAERS Safety Report 12282144 (Version 1)
Quarter: 2016Q2

REPORT INFORMATION
  Report Type: Spontaneous
  Country: US (occurrence: US)
  Receive Date: 20160419
  Receipt Date: 20160419
  Transmission Date: 20160815
  Serious: No
  Sender: FDA-Public Use
  Company Number: US-BAYER-2016-073311

PATIENT
  Age: 61 Year
  Sex: Male
  Weight: 79.37 kg

DRUGS (22)
  1. MIRALAX [Suspect]
     Active Substance: POLYETHYLENE GLYCOL 3350
     Indication: CONSTIPATION
     Dosage: 1 DF, QD
     Route: 048
     Dates: start: 2016
  2. METOPROLOL. [Concomitant]
     Active Substance: METOPROLOL
  3. ZETIA [Concomitant]
     Active Substance: EZETIMIBE
  4. THIAMINE. [Concomitant]
     Active Substance: THIAMINE
  5. CLOBETASOL PROPIONATE. [Concomitant]
     Active Substance: CLOBETASOL PROPIONATE
  6. CARVEDILOL. [Concomitant]
     Active Substance: CARVEDILOL
  7. FUROSEMIDE. [Concomitant]
     Active Substance: FUROSEMIDE
  8. VITAMIN B12 [Concomitant]
     Active Substance: CYANOCOBALAMIN
  9. CETIRIZINE [Concomitant]
     Active Substance: CETIRIZINE HYDROCHLORIDE
  10. SARNA NOS [Concomitant]
     Active Substance: CAMPHOR (NATURAL)\MENTHOL OR PRAMOXINE HYDROCHLORIDE
  11. BAYER LOW DOSE [Concomitant]
     Active Substance: ASPIRIN
  12. PANTOPRAZOLE [Concomitant]
     Active Substance: PANTOPRAZOLE SODIUM
  13. LISINOPRIL. [Concomitant]
     Active Substance: LISINOPRIL
  14. WARFARIN [Concomitant]
     Active Substance: WARFARIN
  15. FAMOTIDINE. [Concomitant]
     Active Substance: FAMOTIDINE
  16. INDOMETHACIN. [Concomitant]
     Active Substance: INDOMETHACIN
  17. CETAPHIL [CETYL ALCOHOL,PROPYLENE GLYCOL,STEARYL ALCOHOL] [Concomitant]
  18. TYLENOL WITH CODEINE [Concomitant]
     Active Substance: ACETAMINOPHEN\CODEINE PHOSPHATE
  19. MULTIVITAMIN [Concomitant]
     Active Substance: VITAMINS
  20. IRON [Concomitant]
     Active Substance: IRON
  21. TAMSULOSIN [Concomitant]
     Active Substance: TAMSULOSIN
  22. BISACODYL. [Concomitant]
     Active Substance: BISACODYL

REACTIONS (1)
  - Product use issue [None]

NARRATIVE: CASE EVENT DATE: 2016
